FAERS Safety Report 4725704-2 (Version None)
Quarter: 2005Q3

REPORT INFORMATION
  Report Type: 
  Country: None (occurrence: None)
  Receive Date: 20050722
  Receipt Date: 20050722
  Transmission Date: 20060218
  Serious: Yes (Hospitalization)
  Sender: FDA-Public Use
  Company Number: None

PATIENT
  Age: 36 Year
  Sex: Male

DRUGS (3)
  1. CLONAZEPAM [Suspect]
  2. OXCARBAZEPINE [Suspect]
  3. ARIPIPRAZOLE [Concomitant]

REACTIONS (3)
  - ABNORMAL BEHAVIOUR [None]
  - APHASIA [None]
  - MENTAL STATUS CHANGES [None]
